FAERS Safety Report 9483233 (Version 1)
Quarter: 2013Q3

REPORT INFORMATION
  Report Type: Other
  Country: GB (occurrence: GB)
  Receive Date: 20130828
  Receipt Date: 20130828
  Transmission Date: 20140515
  Serious: Yes (Hospitalization)
  Sender: FDA-Public Use
  Company Number: GB-PERRIGO-13GB008594

PATIENT
  Sex: Male

DRUGS (2)
  1. IBUPROFEN 20 MG/ML 16028/0075 [Suspect]
     Indication: FEBRILE INFECTION
     Route: 048
  2. PARACETAMOL [Suspect]
     Indication: FEBRILE INFECTION
     Dosage: UNK
     Route: 048

REACTIONS (3)
  - Hypersensitivity [Unknown]
  - Urticaria [Unknown]
  - Swollen tongue [Unknown]
